FAERS Safety Report 4733460-7 (Version None)
Quarter: 2005Q3

REPORT INFORMATION
  Report Type: 
  Country: None (occurrence: None)
  Receive Date: 20050801
  Receipt Date: 20050721
  Transmission Date: 20060218
  Serious: Yes (Hospitalization, Other)
  Sender: FDA-Public Use
  Company Number: HQWYE411822JUL05

PATIENT
  Age: 86 Year
  Sex: Female

DRUGS (10)
  1. VENLAFAXINE HCL [Suspect]
     Indication: DEPRESSION
     Dosage: SEE IMAGE
     Route: 048
     Dates: start: 20050404, end: 20050410
  2. NIFEDIPINE [Concomitant]
  3. CEROCRAL                 (IFENPRODIL TARTRATE) [Concomitant]
  4. BROTIZOLAM                          (BROTIZOLAM) [Concomitant]
  5. ALOSENN (ACHILLEA/RUBIA ROOT TINCTURE/SENNA FRUIT/SENNA LEAF /TARAXACU [Concomitant]
  6. CAMOSTAT MESILATE        (CAMOSTAT MESILATE0 [Concomitant]
  7. MILTAX                       (KETOPROFEN) [Concomitant]
  8. SANCOBA                        (CYANOCOBALAMIN) [Concomitant]
  9. DISOPYRAMIDE [Concomitant]
  10. FAMOTIDINE [Concomitant]

REACTIONS (4)
  - HYPOCHLORAEMIA [None]
  - HYPOKALAEMIA [None]
  - HYPONATRAEMIA [None]
  - HYPOPROTEINAEMIA [None]
